FAERS Safety Report 25077913 (Version 2)
Quarter: 2025Q2

REPORT INFORMATION
  Report Type: Report from Study
  Country: US (occurrence: US)
  Receive Date: 20250314
  Receipt Date: 20250403
  Transmission Date: 20250717
  Serious: No
  Sender: ABBVIE
  Company Number: US-ABBVIE-6168972

PATIENT
  Age: 34 Year
  Sex: Female
  Weight: 154 kg

DRUGS (1)
  1. HUMIRA [Suspect]
     Active Substance: ADALIMUMAB
     Indication: Hidradenitis
     Dosage: CITRATE FREE
     Route: 058
     Dates: start: 20241001

REACTIONS (1)
  - Foreign body in gastrointestinal tract [Not Recovered/Not Resolved]

NARRATIVE: CASE EVENT DATE: 20250226
